FAERS Safety Report 24727546 (Version 2)
Quarter: 2024Q4

REPORT INFORMATION
  Report Type: Spontaneous
  Country: US (occurrence: US)
  Receive Date: 20241212
  Receipt Date: 20241219
  Transmission Date: 20250115
  Serious: Yes (Hospitalization, Other)
  Sender: PFIZER
  Company Number: US-PFIZER INC-PV202400160512

PATIENT
  Age: 75 Year
  Sex: Female
  Weight: 96.7 kg

DRUGS (6)
  1. IBRANCE [Suspect]
     Active Substance: PALBOCICLIB
     Indication: Breast cancer metastatic
     Dosage: DAILY 3 WEEKS ON/1 WEEK OFF
     Route: 048
     Dates: start: 20201209
  2. IBRANCE [Suspect]
     Active Substance: PALBOCICLIB
     Dosage: CYCLICAL DAILY 3 WEEKS ON/1 WEEK OFF
     Route: 048
     Dates: start: 20221021
  3. ELIQUIS [Suspect]
     Active Substance: APIXABAN
     Indication: Pulmonary embolism
     Dosage: 2.5 MG, 2X/DAY
  4. ELIQUIS [Suspect]
     Active Substance: APIXABAN
     Dosage: 5 MG, 2X/DAY
  5. XGEVA [Suspect]
     Active Substance: DENOSUMAB
     Indication: Metastases to bone
     Dosage: QMO (EVERY MONTH)
     Dates: start: 20201215
  6. FEMARA [Suspect]
     Active Substance: LETROZOLE
     Dosage: 1X/DAY
     Dates: start: 20201209

REACTIONS (17)
  - Gastrointestinal haemorrhage [Unknown]
  - Duodenal ulcer [Unknown]
  - Anaemia [Unknown]
  - Pulmonary embolism [Recovering/Resolving]
  - Renal disorder [Unknown]
  - Mental disorder [Unknown]
  - Rotator cuff syndrome [Not Recovered/Not Resolved]
  - Lymphadenopathy [Unknown]
  - Thyroid mass [Unknown]
  - White blood cell count decreased [Unknown]
  - Haematocrit decreased [Not Recovered/Not Resolved]
  - Troponin increased [Recovering/Resolving]
  - Full blood count abnormal [Unknown]
  - Metabolic function test abnormal [Unknown]
  - Tooth fracture [Unknown]
  - Cough [Unknown]
  - Platelet count decreased [Unknown]

NARRATIVE: CASE EVENT DATE: 20210616
